FAERS Safety Report 4576247-0 (Version None)
Quarter: 2005Q1

REPORT INFORMATION
  Report Type: 
  Country: None (occurrence: None)
  Receive Date: 20050207
  Receipt Date: 20050201
  Transmission Date: 20050727
  Serious: Yes (Life-Threatening, Hospitalization)
  Sender: FDA-Public Use
  Company Number: 2005-01-1879

PATIENT
  Age: 63 Year
  Sex: Female
  Weight: 45 kg

DRUGS (8)
  1. CELESTONE [Suspect]
     Indication: ANAPLASTIC ASTROCYTOMA
     Dosage: SEE IMAGE
     Route: 048
     Dates: start: 20041104
  2. TEMOZOLOMIDE CAPSULES [Suspect]
     Indication: ANAPLASTIC ASTROCYTOMA
     Dosage: 150 MG/M2 QD* ORAL
     Route: 048
     Dates: start: 20040929, end: 20041003
  3. TEMOZOLOMIDE CAPSULES [Suspect]
     Indication: ANAPLASTIC ASTROCYTOMA
     Dosage: 150 MG/M2 QD* ORAL
     Route: 048
     Dates: start: 20040929, end: 20050102
  4. TEMOZOLOMIDE CAPSULES [Suspect]
     Indication: ANAPLASTIC ASTROCYTOMA
     Dosage: 150 MG/M2 QD* ORAL
     Route: 048
     Dates: start: 20041229, end: 20050102
  5. AMLODIPINE BESYLATE [Concomitant]
  6. GASTER TRABLETS [Concomitant]
  7. SELBEX CAPSULES [Concomitant]
  8. PURSENNID [Concomitant]

REACTIONS (15)
  - ASCITES [None]
  - BACTERIAL INFECTION [None]
  - DISSEMINATED INTRAVASCULAR COAGULATION [None]
  - ENDOTOXIC SHOCK [None]
  - HERPES ZOSTER [None]
  - MULTI-ORGAN FAILURE [None]
  - OEDEMA PERIPHERAL [None]
  - PANCYTOPENIA [None]
  - PERICARDIAL EFFUSION [None]
  - PLATELET COUNT DECREASED [None]
  - PLEURAL EFFUSION [None]
  - RENAL FAILURE ACUTE [None]
  - RESPIRATORY FAILURE [None]
  - SEPTIC SHOCK [None]
  - WHITE BLOOD CELL COUNT DECREASED [None]
